FAERS Safety Report 23400815 (Version 2)
Quarter: 2024Q1

REPORT INFORMATION
  Report Type: Other
  Country: US (occurrence: None)
  Receive Date: 20240115
  Receipt Date: 20240130
  Transmission Date: 20240410
  Serious: Yes (Other)
  Sender: FDA-Public Use
  Company Number: US-ROCHE-3488860

PATIENT
  Age: 63 Year
  Sex: Female

DRUGS (17)
  1. HERCEPTIN HYLECTA [Suspect]
     Active Substance: HYALURONIDASE-OYSK\TRASTUZUMAB
     Indication: Breast cancer female
     Route: 058
  2. HERCEPTIN [Suspect]
     Active Substance: TRASTUZUMAB
     Indication: Breast cancer female
     Dosage: CYCLE 1-2, EVERY 21 DAYS GIVEN ON DAY 1
     Route: 041
     Dates: start: 20230519
  3. PERTUZUMAB [Suspect]
     Active Substance: PERTUZUMAB
     Indication: Breast cancer female
     Route: 065
     Dates: start: 20230519
  4. CEFADROXIL [Concomitant]
     Active Substance: CEFADROXIL
  5. DOCETAXEL [Concomitant]
     Active Substance: DOCETAXEL\DOCETAXEL ANHYDROUS
  6. CARBOPLATIN [Concomitant]
     Active Substance: CARBOPLATIN
  7. AMLODIPINE [Concomitant]
     Active Substance: AMLODIPINE BESYLATE
  8. EDARBYCLOR [Concomitant]
     Active Substance: AZILSARTAN KAMEDOXOMIL\CHLORTHALIDONE
  9. ERGOCALCIFEROL [Concomitant]
     Active Substance: ERGOCALCIFEROL
  10. DIPHENHYDRAMINE [Concomitant]
     Active Substance: DIPHENHYDRAMINE
  11. IRON [Concomitant]
     Active Substance: IRON
  12. GABAPENTIN [Concomitant]
     Active Substance: GABAPENTIN
  13. HEPARIN [Concomitant]
     Active Substance: HEPARIN SODIUM
  14. TOPROL XL [Concomitant]
     Active Substance: METOPROLOL SUCCINATE
  15. EMLA [Concomitant]
     Active Substance: LIDOCAINE\PRILOCAINE
  16. PROCHLORPERAZINE [Concomitant]
     Active Substance: PROCHLORPERAZINE
  17. SODIUM CHLORIDE [Concomitant]
     Active Substance: SODIUM CHLORIDE

REACTIONS (12)
  - Breast cancer recurrent [Unknown]
  - Neuropathy peripheral [Unknown]
  - Somnolence [Unknown]
  - Obesity [Unknown]
  - Acquired haemoglobinopathy [Unknown]
  - Thrombocytosis [Unknown]
  - Seroma [Unknown]
  - Impaired healing [Unknown]
  - Wound dehiscence [Unknown]
  - Diarrhoea [Unknown]
  - Normocytic anaemia [Unknown]
  - Bone pain [Unknown]
